FAERS Safety Report 10301967 (Version 2)
Quarter: 2015Q3

REPORT INFORMATION
  Report Type: Spontaneous
  Country: US (occurrence: None)
  Receive Date: 20140709
  Receipt Date: 20140822
  Transmission Date: 20151125
  Serious: Yes (Other)
  Sender: FDA-Public Use
  Company Number: 2014RT000079

PATIENT
  Age: 25 Year
  Sex: Female
  Weight: 41 kg

DRUGS (2)
  1. PROCYSBI DELAYED-RELEASE [Suspect]
     Active Substance: CYSTEAMINE BITARTRATE
     Indication: CYSTINOSIS
     Route: 048
     Dates: start: 2010, end: 2013
  2. CYSTARAN [Concomitant]
     Active Substance: CYSTEAMINE HYDROCHLORIDE

REACTIONS (4)
  - Nausea [None]
  - Renal impairment [None]
  - Vomiting [None]
  - Malaise [None]
